FAERS Safety Report 11749933 (Version 1)
Quarter: 2015Q4

REPORT INFORMATION
  Report Type: Spontaneous
  Country: US (occurrence: None)
  Receive Date: 20151117
  Receipt Date: 20151117
  Transmission Date: 20160304
  Serious: Yes (Other)
  Sender: FDA-Public Use
  Company Number: None

PATIENT
  Age: 58 Year
  Sex: Female
  Weight: 76.2 kg

DRUGS (9)
  1. CALCIUM + VIT D [Concomitant]
     Active Substance: CALCIUM\VITAMIN D
  2. TYLENOL [Concomitant]
     Active Substance: ACETAMINOPHEN
  3. PREMARIN [Concomitant]
     Active Substance: ESTROGENS, CONJUGATED
  4. SERTRALINE [Concomitant]
     Active Substance: SERTRALINE HYDROCHLORIDE
  5. VALACYCLOVIR [Concomitant]
     Active Substance: VALACYCLOVIR HYDROCHLORIDE
  6. VIT B-12 [Concomitant]
  7. DOCETAXEL. [Suspect]
     Active Substance: DOCETAXEL
     Indication: SMALL CELL LUNG CANCER
     Dates: start: 20150526, end: 20151114
  8. PROBIOTIC [Concomitant]
     Active Substance: PROBIOTICS NOS
  9. LOMOTIL/ATROPINE [Concomitant]

REACTIONS (3)
  - Pain [None]
  - Blister [None]
  - Skin exfoliation [None]

NARRATIVE: CASE EVENT DATE: 20150616
